FAERS Safety Report 10141732 (Version 1)
Quarter: 2014Q2

REPORT INFORMATION
  Report Type: Spontaneous
  Country: US (occurrence: US)
  Receive Date: 20140429
  Receipt Date: 20140429
  Transmission Date: 20141212
  Serious: Yes (Other)
  Sender: FDA-Public Use
  Company Number: US-BAYER-2014-062015

PATIENT
  Age: 52 Year
  Sex: Male
  Weight: 57.6 kg

DRUGS (1)
  1. ALEVE CAPLET [Suspect]
     Dosage: 10 DF, UNK
     Route: 048
     Dates: start: 20140424, end: 20140424

REACTIONS (1)
  - Intentional product misuse [None]
